FAERS Safety Report 11312188 (Version 3)
Quarter: 2017Q4

REPORT INFORMATION
  Report Type: Spontaneous
  Country: CH (occurrence: CH)
  Receive Date: 20150727
  Receipt Date: 20171108
  Transmission Date: 20180320
  Serious: Yes (Death, Life-Threatening, Other)
  Sender: FDA-Public Use
  Company Number: CH-JNJFOC-20150713373

PATIENT
  Age: 40 Year
  Sex: Male
  Weight: 63 kg

DRUGS (6)
  1. CLONAZEPAM. [Concomitant]
     Active Substance: CLONAZEPAM
     Indication: ARTHRALGIA
     Route: 065
  2. DIAZEPAM. [Concomitant]
     Active Substance: DIAZEPAM
     Indication: ARTHRALGIA
     Route: 065
  3. TRAMADOL HYDROCHLORIDE. [Suspect]
     Active Substance: TRAMADOL HYDROCHLORIDE
     Indication: ABDOMINAL PAIN
     Route: 065
  4. CITALOPRAM [Concomitant]
     Active Substance: CITALOPRAM HYDROBROMIDE
     Indication: ARTHRALGIA
     Route: 065
  5. OXYCODONE [Concomitant]
     Active Substance: OXYCODONE
     Indication: ARTHRALGIA
     Route: 065
  6. MORPHINE [Concomitant]
     Active Substance: MORPHINE
     Indication: PROCEDURAL PAIN
     Route: 065

REACTIONS (3)
  - Haemorrhage [Fatal]
  - Toxicity to various agents [Fatal]
  - Self-medication [Unknown]
